FAERS Safety Report 8023627-7 (Version None)
Quarter: 2012Q1

REPORT INFORMATION
  Report Type: 
  Country: None (occurrence: None)
  Receive Date: 20120104
  Receipt Date: 20120104
  Transmission Date: 20120608
  Serious: Yes (Life-Threatening, Other)
  Sender: FDA-Public Use
  Company Number: None

PATIENT
  Age: 71 Year
  Sex: Male
  Weight: 76.6579 kg

DRUGS (2)
  1. COZAAR [Suspect]
     Indication: ATRIAL FLUTTER
     Dosage: 100MG 1 DAILY ORAL
     Route: 048
     Dates: start: 20111020, end: 20111108
  2. COZAAR [Suspect]
     Indication: HYPERTENSION
     Dosage: 100MG 1 DAILY ORAL
     Route: 048
     Dates: start: 20111020, end: 20111108

REACTIONS (4)
  - DIZZINESS [None]
  - PALPITATIONS [None]
  - HYPOAESTHESIA [None]
  - DYSPNOEA [None]
